FAERS Safety Report 5526845-2 (Version None)
Quarter: 2007Q4

REPORT INFORMATION
  Report Type: 
  Country: None (occurrence: None)
  Receive Date: 20071127
  Receipt Date: 20071115
  Transmission Date: 20080405
  Serious: Yes (Other)
  Sender: FDA-Public Use
  Company Number: US-PFIZER INC-2007072624

PATIENT
  Sex: Female
  Weight: 71.4 kg

DRUGS (3)
  1. CHANTIX [Suspect]
     Indication: SMOKING CESSATION THERAPY
  2. IMIPRAMINE [Concomitant]
     Indication: ANXIETY DISORDER
  3. XANAX [Concomitant]
     Indication: ANXIETY DISORDER

REACTIONS (6)
  - BLOOD PRESSURE INCREASED [None]
  - CARDIAC DISORDER [None]
  - LIP SWELLING [None]
  - STOMATITIS [None]
  - STRESS [None]
  - WRONG TECHNIQUE IN DRUG USAGE PROCESS [None]
